FAERS Safety Report 14316691 (Version 1)
Quarter: 2017Q4

REPORT INFORMATION
  Report Type: Spontaneous
  Country: US (occurrence: US)
  Receive Date: 20171222
  Receipt Date: 20171222
  Transmission Date: 20180321
  Serious: No
  Sender: FDA-Public Use
  Company Number: US-PFIZER INC-2017540125

PATIENT
  Sex: Female

DRUGS (3)
  1. LYRICA [Suspect]
     Active Substance: PREGABALIN
     Indication: NEURALGIA
     Dosage: UNK
  2. LYRICA [Suspect]
     Active Substance: PREGABALIN
     Dosage: 75 MG, UNK
  3. IRON OXIDES [Suspect]
     Active Substance: FERRIC OXIDE RED
     Dosage: UNK

REACTIONS (3)
  - Urticaria [Unknown]
  - Drug ineffective [Unknown]
  - Allergic reaction to excipient [Unknown]
